FAERS Safety Report 9797989 (Version 1)
Quarter: 2014Q1

REPORT INFORMATION
  Report Type: Spontaneous
  Country: IT (occurrence: IT)
  Receive Date: 20140106
  Receipt Date: 20140106
  Transmission Date: 20141002
  Serious: Yes (Hospitalization)
  Sender: FDA-Public Use
  Company Number: PHHY2014IT000543

PATIENT
  Sex: Female

DRUGS (4)
  1. EXJADE [Suspect]
     Indication: THALASSAEMIA
     Dosage: 3000 MG, DAILY
     Route: 048
     Dates: start: 20110101
  2. EXJADE [Suspect]
     Dosage: UNK UKN, UNK
     Route: 048
  3. FOLIN//FOLIC ACID [Concomitant]
     Dosage: 5 MG, UNK
     Route: 048
  4. CARDIOASPIRIN [Concomitant]
     Dosage: 100 MG, UNK
     Route: 048

REACTIONS (2)
  - Asthenia [Recovering/Resolving]
  - Arthralgia [Recovering/Resolving]
